FAERS Safety Report 10580023 (Version 2)
Quarter: 2014Q4

REPORT INFORMATION
  Report Type: Spontaneous
  Country: US (occurrence: US)
  Receive Date: 20141112
  Receipt Date: 20141202
  Transmission Date: 20150529
  Serious: Yes (Hospitalization)
  Sender: FDA-Public Use
  Company Number: US-TEVA-521953USA

PATIENT
  Sex: Female

DRUGS (1)
  1. COPAXONE [Suspect]
     Active Substance: GLATIRAMER ACETATE
     Indication: MULTIPLE SCLEROSIS
     Dates: start: 2014

REACTIONS (7)
  - Fall [Recovering/Resolving]
  - Laceration [Recovering/Resolving]
  - Headache [Recovered/Resolved]
  - Head injury [Recovering/Resolving]
  - Loss of consciousness [Recovering/Resolving]
  - Clavicle fracture [Recovering/Resolving]
  - Cerebral haemorrhage [Recovered/Resolved]
